FAERS Safety Report 23237238 (Version 2)
Quarter: 2024Q1

REPORT INFORMATION
  Report Type: Report from Study
  Country: CA (occurrence: CA)
  Receive Date: 20231128
  Receipt Date: 20240110
  Transmission Date: 20240409
  Serious: Yes (Death, Hospitalization, Other)
  Sender: FDA-Public Use
  Company Number: CA-BAYER-2023A165335

PATIENT
  Age: 59 Year
  Sex: Male

DRUGS (2)
  1. NEXAVAR [Suspect]
     Active Substance: SORAFENIB
     Indication: Desmoid tumour
     Dosage: UNK
     Route: 048
     Dates: start: 20200609, end: 202310
  2. NEXAVAR [Suspect]
     Active Substance: SORAFENIB
     Indication: Adenomatous polyposis coli

REACTIONS (3)
  - Lung disorder [Not Recovered/Not Resolved]
  - Pulmonary fibrosis [Not Recovered/Not Resolved]
  - Death [Fatal]

NARRATIVE: CASE EVENT DATE: 20231001
